FAERS Safety Report 7921230-8 (Version None)
Quarter: 2011Q4

REPORT INFORMATION
  Report Type: 
  Country: None (occurrence: None)
  Receive Date: 20111117
  Receipt Date: 20111115
  Transmission Date: 20120403
  Serious: No
  Sender: FDA-Public Use
  Company Number: US-PFIZER INC-2011280238

PATIENT
  Age: 55 Year
  Sex: Female
  Weight: 63.492 kg

DRUGS (3)
  1. VITAMIN TAB [Concomitant]
     Dosage: UNK
  2. IBUPROFEN (ADVIL) [Suspect]
     Indication: ARTHRALGIA
     Dosage: 200 MG, UNK
     Route: 048
     Dates: end: 20111114
  3. ALCOHOL [Suspect]
     Dosage: MORE THAN 3 DRINKS

REACTIONS (4)
  - DRUG ADMINISTRATION ERROR [None]
  - VOMITING [None]
  - MALAISE [None]
  - FATIGUE [None]
